FAERS Safety Report 4469331-3 (Version None)
Quarter: 2004Q4

REPORT INFORMATION
  Report Type: 
  Country: None (occurrence: None)
  Receive Date: 20041008
  Receipt Date: 20031229
  Transmission Date: 20050328
  Serious: No
  Sender: FDA-Public Use
  Company Number: US-BRISTOL-MYERS SQUIBB COMPANY-12466108

PATIENT
  Age: 84 Year
  Sex: Female
  Weight: 58 kg

DRUGS (7)
  1. AVAPRO [Suspect]
     Indication: HYPERTENSION
     Route: 048
     Dates: start: 19990101
  2. ASPIRIN [Concomitant]
  3. AMBIEN [Concomitant]
  4. BUSPAR [Concomitant]
  5. FOSAMAX [Concomitant]
  6. PLAVIX [Concomitant]
  7. MULTIVITAMIN [Concomitant]

REACTIONS (1)
  - COUGH [None]
